FAERS Safety Report 8225633-6 (Version None)
Quarter: 2012Q1

REPORT INFORMATION
  Report Type: 
  Country: None (occurrence: None)
  Receive Date: 20120321
  Receipt Date: 20120314
  Transmission Date: 20120608
  Serious: Yes (Life-Threatening, Hospitalization)
  Sender: FDA-Public Use
  Company Number: US-B.I. PHARMACEUTICALS,INC./RIDGEFIELD-2012-EU-01482GD

PATIENT
  Age: 59 Year
  Sex: Male

DRUGS (5)
  1. SILDENAFIL [Suspect]
     Dosage: 600 MG
     Route: 048
  2. PROPAFENONE HCL [Suspect]
     Route: 048
  3. ENALAPRIL [Suspect]
     Route: 048
  4. DABIGATRAN ETEXILATE [Suspect]
     Dosage: 4500 MG
     Route: 048
  5. PRAVASTATIN [Concomitant]

REACTIONS (9)
  - RESPIRATORY DISTRESS [None]
  - INTENTIONAL OVERDOSE [None]
  - ELECTROCARDIOGRAM QRS COMPLEX PROLONGED [None]
  - MENTAL IMPAIRMENT [None]
  - SOMNOLENCE [None]
  - PALLOR [None]
  - SUICIDE ATTEMPT [None]
  - PNEUMONIA [None]
  - HYPERHIDROSIS [None]
